FAERS Safety Report 9010985 (Version 3)
Quarter: 2014Q2

REPORT INFORMATION
  Report Type: Spontaneous
  Country: US (occurrence: US)
  Receive Date: 20130109
  Receipt Date: 20140514
  Transmission Date: 20141212
  Serious: No
  Sender: FDA-Public Use
  Company Number: US-ASTRAZENECA-2013SE01086

PATIENT
  Age: 65 Year
  Sex: Male
  Weight: 72.6 kg

DRUGS (5)
  1. SYMBICORT PMDI [Suspect]
     Indication: CHRONIC OBSTRUCTIVE PULMONARY DISEASE
     Dosage: 160/4.5 MCG , TWO TIMES A DAY
     Route: 055
     Dates: start: 20110309
  2. SYMBICORT PMDI [Suspect]
     Indication: EMPHYSEMA
     Dosage: 160/4.5 MCG , TWO TIMES A DAY
     Route: 055
     Dates: start: 20110309
  3. SYMBICORT PMDI [Suspect]
     Indication: CHRONIC OBSTRUCTIVE PULMONARY DISEASE
     Dosage: 160/4.5 MCG , TWO PUFFS, TWO TIMES A DAY
     Route: 055
     Dates: start: 2012
  4. SYMBICORT PMDI [Suspect]
     Indication: EMPHYSEMA
     Dosage: 160/4.5 MCG , TWO PUFFS, TWO TIMES A DAY
     Route: 055
     Dates: start: 2012
  5. BABY ASPIRIN [Concomitant]
     Dosage: DAILY

REACTIONS (4)
  - Pneumonia [Recovered/Resolved]
  - Feeling abnormal [Not Recovered/Not Resolved]
  - Dyspnoea [Not Recovered/Not Resolved]
  - Drug dose omission [Not Recovered/Not Resolved]
